FAERS Safety Report 6684802-7 (Version None)
Quarter: 2010Q2

REPORT INFORMATION
  Report Type: 
  Country: None (occurrence: None)
  Receive Date: 20100416
  Receipt Date: 20100406
  Transmission Date: 20101027
  Serious: Yes (Disabling)
  Sender: FDA-Public Use
  Company Number: FR-JNJFOC-20090808702

PATIENT
  Age: 66 Year
  Sex: Male

DRUGS (8)
  1. REMICADE [Suspect]
     Indication: ANKYLOSING SPONDYLITIS
     Dosage: 2ND INFUSION
     Route: 042
  2. REMICADE [Suspect]
     Route: 042
  3. ATACAND [Concomitant]
  4. CRESTOR [Concomitant]
  5. KARDEGIC [Concomitant]
  6. VOLTAREN [Concomitant]
  7. PARACETAMOL [Concomitant]
  8. LANZOR [Concomitant]

REACTIONS (4)
  - ASTHENIA [None]
  - BALANCE DISORDER [None]
  - HEADACHE [None]
  - MEMORY IMPAIRMENT [None]
